FAERS Safety Report 5102658-0 (Version None)
Quarter: 2006Q3

REPORT INFORMATION
  Report Type: 
  Country: None (occurrence: None)
  Receive Date: 20060912
  Receipt Date: 20060727
  Transmission Date: 20061208
  Serious: Yes (Other)
  Sender: FDA-Public Use
  Company Number: JP-PURDUE-USA_2006_0024716

PATIENT
  Age: 4 Year
  Sex: Male

DRUGS (4)
  1. CEFDITOREN PIVOXIL (SIMILAR TO NDA 21-222) [Suspect]
     Indication: DRUG USE FOR UNKNOWN INDICATION
     Dosage: UNK MG, DAILY
     Route: 048
     Dates: start: 20060605, end: 20060609
  2. POLARAMINE [Concomitant]
     Indication: BRONCHITIS ACUTE
     Dosage: 4 MG, DAILY
     Route: 048
     Dates: start: 20060620
  3. CEFDITOREN PIVOXIL (SIMILAR TO NDA 21-222) [Suspect]
     Indication: BRONCHITIS ACUTE
     Dosage: 159 MG, DAILY
     Route: 048
     Dates: start: 20060620, end: 20060621
  4. ATOCK [Concomitant]
     Indication: DRUG USE FOR UNKNOWN INDICATION
     Dosage: 2 DF, DAILY
     Route: 048
     Dates: start: 20060620

REACTIONS (4)
  - ABASIA [None]
  - ANOREXIA [None]
  - BLOOD GLUCOSE DECREASED [None]
  - HYPOGLYCAEMIA [None]
